FAERS Safety Report 5314108-X (Version None)
Quarter: 2007Q2

REPORT INFORMATION
  Report Type: 
  Country: None (occurrence: None)
  Receive Date: 20070501
  Receipt Date: 20070427
  Transmission Date: 20071010
  Serious: Yes (Hospitalization)
  Sender: FDA-Public Use
  Company Number: US-ABBOTT-07P-163-0358120-00

PATIENT
  Sex: Female
  Weight: 72.64 kg

DRUGS (17)
  1. HUMIRA [Suspect]
     Indication: CROHN'S DISEASE
     Dosage: 1 DOSE
     Route: 058
     Dates: start: 20061121, end: 20061121
  2. INFLIXIMAB [Concomitant]
     Indication: DRUG USE FOR UNKNOWN INDICATION
  3. OMEPRAZOLE [Concomitant]
     Indication: DRUG USE FOR UNKNOWN INDICATION
  4. FERROUS SULFATE TAB [Concomitant]
     Indication: DRUG USE FOR UNKNOWN INDICATION
  5. FLUVOXAMINE MALEATE [Concomitant]
     Indication: DRUG USE FOR UNKNOWN INDICATION
  6. LEVETIRACETAM [Concomitant]
     Indication: DRUG USE FOR UNKNOWN INDICATION
  7. METFORMIN HCL [Concomitant]
     Indication: DRUG USE FOR UNKNOWN INDICATION
  8. ZIPRASIDONE HCL [Concomitant]
     Indication: DRUG USE FOR UNKNOWN INDICATION
  9. BACLOFEN [Concomitant]
     Indication: DRUG USE FOR UNKNOWN INDICATION
  10. ENDOCORT [Concomitant]
     Indication: DRUG USE FOR UNKNOWN INDICATION
  11. FANTASA [Concomitant]
     Indication: DRUG USE FOR UNKNOWN INDICATION
  12. PROPRANOLOL [Concomitant]
     Indication: DRUG USE FOR UNKNOWN INDICATION
  13. 6MP [Concomitant]
     Indication: DRUG USE FOR UNKNOWN INDICATION
  14. CLORMINPRAMINE [Concomitant]
     Indication: DRUG USE FOR UNKNOWN INDICATION
  15. PENTASA [Concomitant]
     Indication: DRUG USE FOR UNKNOWN INDICATION
  16. MESALAZINE [Concomitant]
     Indication: DRUG USE FOR UNKNOWN INDICATION
  17. PANTOPRAZOLE [Concomitant]
     Indication: DRUG USE FOR UNKNOWN INDICATION

REACTIONS (4)
  - CONVULSION [None]
  - INTESTINAL STENOSIS [None]
  - LEUKOPENIA [None]
  - LUNG NEOPLASM [None]
